FAERS Safety Report 19064855 (Version 1)
Quarter: 2021Q1

REPORT INFORMATION
  Report Type: Report from Study
  Country: CA (occurrence: CA)
  Receive Date: 20210327
  Receipt Date: 20210327
  Transmission Date: 20210420
  Serious: Yes (Hospitalization)
  Sender: FDA-Public Use
  Company Number: CA-WORLDWIDE CLINICAL TRIALS-2020-CA-000535

PATIENT
  Age: 37 Year
  Sex: Male
  Weight: 105.4 kg

DRUGS (7)
  1. PERINDOPRIL [Concomitant]
     Active Substance: PERINDOPRIL
     Indication: HYPERTENSION
     Dosage: 8 MILLIGRAM, QD
     Route: 048
     Dates: start: 2014
  2. VIMSELTINIB. [Suspect]
     Active Substance: VIMSELTINIB
     Dosage: 30 MILLIGRAM, PM (ONCE IN THE AFTERNOON/EVENING)
     Route: 048
     Dates: start: 20200728, end: 20200728
  3. VIMSELTINIB. [Suspect]
     Active Substance: VIMSELTINIB
     Dosage: 20 MILLIGRAM, PM (ONCE IN THE AFTERNOON/EVENING
     Route: 048
     Dates: start: 20201003, end: 20201003
  4. VIMSELTINIB. [Suspect]
     Active Substance: VIMSELTINIB
     Indication: SYNOVITIS
     Dosage: 30 MILLIGRAM, QD
     Route: 048
     Dates: start: 20200721, end: 20200725
  5. VIMSELTINIB. [Suspect]
     Active Substance: VIMSELTINIB
     Dosage: 20 MILLIGRAM, PM (ONCE IN THE AFTERNOON/EVENING
     Route: 048
     Dates: start: 20200922, end: 20200922
  6. VIMSELTINIB. [Suspect]
     Active Substance: VIMSELTINIB
     Dosage: 20 MILLIGRAM, PM (ONCE IN THE AFTERNOON/EVENING
     Route: 048
     Dates: start: 20200929, end: 20200929
  7. VIMSELTINIB. [Suspect]
     Active Substance: VIMSELTINIB
     Dosage: 20 MILLIGRAM, PM (ONCE IN THE AFTERNOON/EVENING
     Route: 048
     Dates: start: 20200926, end: 20200926

REACTIONS (1)
  - Metabolic encephalopathy [Recovered/Resolved]

NARRATIVE: CASE EVENT DATE: 20201004
